FAERS Safety Report 10050572 (Version 1)
Quarter: 2014Q2

REPORT INFORMATION
  Report Type: Spontaneous
  Country: US (occurrence: US)
  Receive Date: 20140401
  Receipt Date: 20140401
  Transmission Date: 20141212
  Serious: No
  Sender: FDA-Public Use
  Company Number: US-ASTRAZENECA-2013SE88057

PATIENT
  Age: 58 Year
  Sex: Male

DRUGS (2)
  1. NEXIUM [Suspect]
     Indication: BARRETT^S OESOPHAGUS
     Route: 048
  2. VITAMIN D [Concomitant]

REACTIONS (4)
  - Insomnia [Unknown]
  - Tooth disorder [Unknown]
  - Calcium deficiency [Unknown]
  - Fatigue [Unknown]
